FAERS Safety Report 7756968-9 (Version None)
Quarter: 2011Q3

REPORT INFORMATION
  Report Type: 
  Country: None (occurrence: None)
  Receive Date: 20110916
  Receipt Date: 20110916
  Transmission Date: 20111222
  Serious: Yes (Other)
  Sender: FDA-Public Use
  Company Number: None

PATIENT
  Age: 53 Year
  Sex: Male
  Weight: 81.646 kg

DRUGS (1)
  1. SOMATOMAX [Suspect]
     Indication: INSOMNIA
     Dosage: 1 SCOOP
     Dates: start: 20110904, end: 20110904

REACTIONS (4)
  - MALAISE [None]
  - DISORIENTATION [None]
  - NAUSEA [None]
  - VERTIGO [None]
